FAERS Safety Report 4394875-2 (Version None)
Quarter: 2004Q3

REPORT INFORMATION
  Report Type: 
  Country: None (occurrence: None)
  Receive Date: 20040707
  Receipt Date: 20040622
  Transmission Date: 20050211
  Serious: Yes (Hospitalization)
  Sender: FDA-Public Use
  Company Number: 2004AP03073

PATIENT
  Age: 50 Year
  Sex: Male
  Weight: 53 kg

DRUGS (11)
  1. IRESSA [Suspect]
     Indication: LUNG ADENOCARCINOMA
     Dosage: 250 MG DAILY PO
     Route: 048
     Dates: start: 20040322, end: 20040527
  2. IRESSA [Suspect]
     Indication: NON-SMALL CELL LUNG CANCER
     Dosage: 250 MG DAILY PO
     Route: 048
     Dates: start: 20040322, end: 20040527
  3. THEO-DUR [Concomitant]
  4. ADONA (AC-17) [Concomitant]
  5. TRANSAMIN [Concomitant]
  6. VITAMEDIN CAPSULE [Concomitant]
  7. RADIATION THERAPY [Concomitant]
  8. CISPLATIN [Concomitant]
  9. NAVELBINE [Concomitant]
  10. PARAPLALTIN [Concomitant]
  11. GEMZAR [Concomitant]

REACTIONS (3)
  - COUGH [None]
  - INTERSTITIAL LUNG DISEASE [None]
  - PYREXIA [None]
